FAERS Safety Report 7770427-9 (Version None)
Quarter: 2011Q3

REPORT INFORMATION
  Report Type: 
  Country: None (occurrence: None)
  Receive Date: 20110922
  Receipt Date: 20100901
  Transmission Date: 20111222
  Serious: No
  Sender: FDA-Public Use
  Company Number: US-ASTRAZENECA-2010SE41404

PATIENT
  Sex: Female

DRUGS (5)
  1. PROZAC [Concomitant]
     Route: 048
  2. AMLODIPINE/HCT [Concomitant]
     Route: 048
  3. RISPERIDONE [Concomitant]
     Route: 048
  4. SEROQUEL XR [Suspect]
     Indication: BIPOLAR I DISORDER
     Route: 048
     Dates: start: 20100701
  5. MIRTAZAPINE [Concomitant]
     Dosage: GENERIC REMERON
     Route: 048

REACTIONS (3)
  - DEPRESSION [None]
  - PANIC ATTACK [None]
  - DRUG INEFFECTIVE [None]
